FAERS Safety Report 7049539-3 (Version None)
Quarter: 2010Q4

REPORT INFORMATION
  Report Type: 
  Country: None (occurrence: None)
  Receive Date: 20101013
  Receipt Date: 20101006
  Transmission Date: 20110411
  Serious: Yes (Hospitalization)
  Sender: FDA-Public Use
  Company Number: 2010MA003365

PATIENT
  Age: 36 Year
  Sex: Female

DRUGS (4)
  1. LIDOCAINE HCL [Suspect]
     Indication: ANAESTHESIA
     Dosage: 0.5 PCT;IV
     Route: 042
  2. LIDOCAINE AND EPINEPHRINE [Suspect]
     Indication: ANAESTHESIA
     Dosage: 0.5 PCT;IV
     Route: 042
  3. CON MEDS [Concomitant]
  4. PREV MEDS [Concomitant]

REACTIONS (7)
  - BLOOD PRESSURE DECREASED [None]
  - DRUG EXPOSURE DURING PREGNANCY [None]
  - DRUG TOXICITY [None]
  - DYSGEUSIA [None]
  - HYPERVENTILATION [None]
  - SINUS TACHYCARDIA [None]
  - TINNITUS [None]
